FAERS Safety Report 18991877 (Version 1)
Quarter: 2021Q1

REPORT INFORMATION
  Report Type: Spontaneous
  Country: US (occurrence: US)
  Receive Date: 20210309
  Receipt Date: 20210309
  Transmission Date: 20210420
  Serious: No
  Sender: FDA-Public Use
  Company Number: None

PATIENT
  Age: 41 Year
  Sex: Female
  Weight: 107.1 kg

DRUGS (19)
  1. SUDAPHED [Concomitant]
  2. AMLODIPINE [Concomitant]
     Active Substance: AMLODIPINE BESYLATE
  3. TOPIRAMATE. [Concomitant]
     Active Substance: TOPIRAMATE
  4. LISINOPRIL. [Concomitant]
     Active Substance: LISINOPRIL
  5. CETIRIZINE [Concomitant]
     Active Substance: CETIRIZINE HYDROCHLORIDE
  6. MONTELUKAST [Concomitant]
     Active Substance: MONTELUKAST SODIUM
  7. ALBUTEROL. [Concomitant]
     Active Substance: ALBUTEROL
  8. AZELASTINE HCI NASAL SPRAY 0.1% (137 MCG PER SPRAY) [Suspect]
     Active Substance: AZELASTINE HYDROCHLORIDE
     Indication: UPPER-AIRWAY COUGH SYNDROME
     Dosage: ?          QUANTITY:2 SPRAY(S);?
     Route: 045
     Dates: start: 20210308, end: 20210308
  9. WOMENS MULTI [Concomitant]
  10. VITAMIN D [Concomitant]
     Active Substance: VITAMIN D NOS
  11. TRAMADOL. [Concomitant]
     Active Substance: TRAMADOL
  12. MOTRIN [Concomitant]
     Active Substance: IBUPROFEN
  13. ADMELOG [Concomitant]
     Active Substance: INSULIN LISPRO
  14. OMEPRAZOLE. [Concomitant]
     Active Substance: OMEPRAZOLE
  15. FIORICET [Concomitant]
     Active Substance: ACETAMINOPHEN\BUTALBITAL\CAFFEINE
  16. QUERCETIN/ZINC [Concomitant]
  17. BASAGLAR [Concomitant]
     Active Substance: INSULIN GLARGINE
  18. VITAMIN C [Concomitant]
     Active Substance: ASCORBIC ACID
  19. FISH OIL [Concomitant]
     Active Substance: FISH OIL

REACTIONS (1)
  - Rash [None]

NARRATIVE: CASE EVENT DATE: 20210308
